FAERS Safety Report 5275687-4 (Version None)
Quarter: 2007Q1

REPORT INFORMATION
  Report Type: 
  Country: None (occurrence: None)
  Receive Date: 20070326
  Receipt Date: 20070314
  Transmission Date: 20070707
  Serious: Yes (Other)
  Sender: FDA-Public Use
  Company Number: PHBS2007IT04813

PATIENT
  Age: 72 Year
  Sex: Female

DRUGS (3)
  1. STALEVO 100 [Suspect]
     Indication: PARKINSON'S DISEASE
     Dosage: 100 MG, SIX TIMES (100MG/25MG/200MG)
     Route: 048
     Dates: start: 20070127, end: 20070217
  2. MADOPAR [Suspect]
     Indication: PARKINSON'S DISEASE
     Dosage: 200 MG, BID
     Route: 048
     Dates: start: 20070127, end: 20070217
  3. AZILECT [Concomitant]

REACTIONS (4)
  - APNOEA [None]
  - HYPERHIDROSIS [None]
  - HYPERTENSION [None]
  - RESPIRATORY DEPRESSION [None]
